FAERS Safety Report 9034619 (Version 1)
Quarter: 2013Q1

REPORT INFORMATION
  Report Type: Spontaneous
  Country: DE (occurrence: None)
  Receive Date: 20130115
  Receipt Date: 20130115
  Transmission Date: 20140127
  Serious: Yes (Hospitalization)
  Sender: FDA-Public Use
  Company Number: TPG2013A00043

PATIENT
  Age: 63 Year
  Sex: Female

DRUGS (1)
  1. AZILSARTAN MEDOXOMIL [Suspect]
     Indication: ESSENTIAL HYPERTENSION
     Route: 048
     Dates: start: 20120416, end: 20120420

REACTIONS (2)
  - Hypertension [None]
  - Drug effect decreased [None]
